FAERS Safety Report 10959296 (Version 1)
Quarter: 2015Q1

REPORT INFORMATION
  Report Type: Spontaneous
  Country: US (occurrence: US)
  Receive Date: 20150327
  Receipt Date: 20150327
  Transmission Date: 20150721
  Serious: Yes (Death, Hospitalization)
  Sender: FDA-Public Use
  Company Number: US-CIPLA LTD.-2015US02383

PATIENT

DRUGS (7)
  1. CARISOPRODOL. [Suspect]
     Active Substance: CARISOPRODOL
  2. MELOXICAM. [Suspect]
     Active Substance: MELOXICAM
  3. MEPROBAMATE. [Suspect]
     Active Substance: MEPROBAMATE
  4. LAMOTRIGINE. [Suspect]
     Active Substance: LAMOTRIGINE
  5. DIPHENHYDRAMINE [Suspect]
     Active Substance: DIPHENHYDRAMINE
  6. AMINOCLONAZEPAM [Suspect]
     Active Substance: CLONAZEPAM
  7. NORTRIPTYLINE [Suspect]
     Active Substance: NORTRIPTYLINE

REACTIONS (11)
  - Brain injury [Fatal]
  - Metabolic acidosis [Unknown]
  - Ischaemia [None]
  - Respiratory arrest [Unknown]
  - Cardiac arrest [Unknown]
  - Toxicity to various agents [Fatal]
  - Pneumonia [None]
  - Hypokalaemia [Unknown]
  - Pulmonary oedema [Fatal]
  - Blood magnesium decreased [None]
  - Completed suicide [Fatal]
